FAERS Safety Report 13835862 (Version 2)
Quarter: 2017Q3

REPORT INFORMATION
  Report Type: Spontaneous
  Country: US (occurrence: US)
  Receive Date: 20170804
  Receipt Date: 20170913
  Transmission Date: 20171127
  Serious: No
  Sender: FDA-Public Use
  Company Number: US-ASTRAZENECA-2017SE79112

PATIENT
  Age: 72 Year
  Sex: Female
  Weight: 96.2 kg

DRUGS (4)
  1. COUMADIN [Concomitant]
     Active Substance: WARFARIN SODIUM
     Dosage: UNKNOWN
     Route: 065
  2. INSULIN [Concomitant]
     Active Substance: INSULIN NOS
     Dosage: UNKNOWN
     Route: 065
     Dates: start: 2014
  3. BYDUREON [Suspect]
     Active Substance: EXENATIDE
     Indication: TYPE 2 DIABETES MELLITUS
     Dosage: 2.0MG UNKNOWN
     Route: 058
     Dates: start: 2016
  4. BYDUREON [Suspect]
     Active Substance: EXENATIDE
     Indication: TYPE 2 DIABETES MELLITUS
     Dosage: SDT, 2 MG ONCE A WEEK
     Route: 058
     Dates: start: 2015, end: 201503

REACTIONS (5)
  - Device leakage [Unknown]
  - Weight fluctuation [Unknown]
  - Circumstance or information capable of leading to medication error [Unknown]
  - Injection site haemorrhage [Unknown]
  - Intentional product use issue [Unknown]

NARRATIVE: CASE EVENT DATE: 2015
